FAERS Safety Report 5088286-4 (Version None)
Quarter: 2006Q3

REPORT INFORMATION
  Report Type: 
  Country: None (occurrence: None)
  Receive Date: 20060821
  Receipt Date: 20060804
  Transmission Date: 20061208
  Serious: No
  Sender: FDA-Public Use
  Company Number: E3810-00065-SPO-US

PATIENT
  Age: 40 Year
  Sex: Male

DRUGS (11)
  1. ACIPHEX [Suspect]
     Indication: GASTRITIS
     Dosage: 20 MG, 1 IN 1 D, ORAL
     Route: 048
     Dates: start: 20051223, end: 20060421
  2. ATENOLOL [Concomitant]
  3. ZOLOFT [Concomitant]
  4. ENALAPRIL MALEATE [Concomitant]
  5. POTASSIUM CL (POTASSIUM CHLORATE) [Concomitant]
  6. SUMLIN INSULIN (CARBAZOCHROME SODIUM SULFONATE) [Concomitant]
  7. LIPITOR [Concomitant]
  8. CIPRO [Concomitant]
  9. METRODIAZOLE [Concomitant]
  10. ERYTHROMYCIN [Concomitant]
  11. IBUPROFEN [Concomitant]

REACTIONS (7)
  - FALL [None]
  - FEAR [None]
  - FIBULA FRACTURE [None]
  - FRACTURE DELAYED UNION [None]
  - JOINT SWELLING [None]
  - LIMB INJURY [None]
  - REFUSAL OF TREATMENT BY PATIENT [None]
